FAERS Safety Report 10029830 (Version 1)
Quarter: 2014Q1

REPORT INFORMATION
  Report Type: Spontaneous
  Country: US (occurrence: None)
  Receive Date: 20140320
  Receipt Date: 20140320
  Transmission Date: 20141002
  Serious: Yes (Hospitalization)
  Sender: FDA-Public Use
  Company Number: 2014-US-002689

PATIENT
  Age: 36 Year
  Sex: Female

DRUGS (1)
  1. XYREM (SODIUM OXYBATE) ORAL SOLUTION, 500MG/ML [Suspect]
     Indication: PRODUCT USED FOR UNKNOWN INDICATION
     Route: 048
     Dates: start: 200504, end: 2005

REACTIONS (5)
  - Gastritis [None]
  - Oesophagitis [None]
  - Ulcer [None]
  - Anaemia [None]
  - Thyroid function test abnormal [None]
